FAERS Safety Report 19032460 (Version 1)
Quarter: 2021Q1

REPORT INFORMATION
  Report Type: Spontaneous
  Country: GB (occurrence: GB)
  Receive Date: 20210319
  Receipt Date: 20210319
  Transmission Date: 20210420
  Serious: Yes (Other)
  Sender: FDA-Public Use
  Company Number: GB-PFIZER INC-2021246697

PATIENT
  Sex: Female

DRUGS (2)
  1. BAVENCIO [Suspect]
     Active Substance: AVELUMAB
     Dosage: UNK
     Route: 042
  2. AXITINIB [Suspect]
     Active Substance: AXITINIB
     Dosage: UNK
     Route: 042

REACTIONS (4)
  - Pleural effusion [Unknown]
  - Chest pain [Unknown]
  - Dyspnoea [Recovering/Resolving]
  - Flushing [Unknown]
